FAERS Safety Report 12435493 (Version 1)
Quarter: 2016Q2

REPORT INFORMATION
  Report Type: Spontaneous
  Country: US (occurrence: US)
  Receive Date: 20160603
  Receipt Date: 20160603
  Transmission Date: 20160815
  Serious: Yes (Other)
  Sender: FDA-Public Use
  Company Number: US-ROCHE-1742041

PATIENT
  Sex: Female

DRUGS (1)
  1. KLONOPIN [Suspect]
     Active Substance: CLONAZEPAM
     Indication: PRODUCT USED FOR UNKNOWN INDICATION
     Route: 065

REACTIONS (17)
  - Bacterial infection [Unknown]
  - Palpitations [Unknown]
  - Drug withdrawal syndrome [Unknown]
  - Muscle tightness [Unknown]
  - Influenza [Unknown]
  - Hyperhidrosis [Unknown]
  - Chest pain [Unknown]
  - Drug ineffective [Unknown]
  - Insomnia [Unknown]
  - Sensation of foreign body [Unknown]
  - Feeling cold [Unknown]
  - Overdose [Unknown]
  - Dysphagia [Unknown]
  - Paralysis [Unknown]
  - Anxiety [Unknown]
  - Panic disorder [Unknown]
  - Vomiting [Unknown]
